FAERS Safety Report 10978516 (Version 1)
Quarter: 2015Q2

REPORT INFORMATION
  Report Type: Spontaneous
  Country: TR (occurrence: TR)
  Receive Date: 20150402
  Receipt Date: 20150402
  Transmission Date: 20150821
  Serious: Yes (Death)
  Sender: FDA-Public Use
  Company Number: TR-BEH-2015050133

PATIENT
  Age: 23 Year
  Sex: Male

DRUGS (4)
  1. IVIG [Suspect]
     Active Substance: HUMAN IMMUNOGLOBULIN G
     Indication: DIFFUSE LARGE B-CELL LYMPHOMA
     Route: 042
  2. CIDOFOVIR. [Suspect]
     Active Substance: CIDOFOVIR
     Indication: DIFFUSE LARGE B-CELL LYMPHOMA
  3. IVIG [Suspect]
     Active Substance: HUMAN IMMUNOGLOBULIN G
     Indication: DIFFUSE LARGE B-CELL LYMPHOMA
     Route: 042
  4. CIDOFOVIR. [Suspect]
     Active Substance: CIDOFOVIR
     Indication: DIFFUSE LARGE B-CELL LYMPHOMA

REACTIONS (2)
  - Progressive multifocal leukoencephalopathy [Fatal]
  - Drug ineffective for unapproved indication [Fatal]
